FAERS Safety Report 9376226 (Version 1)
Quarter: 2013Q3

REPORT INFORMATION
  Report Type: Spontaneous
  Country: DE (occurrence: DE)
  Receive Date: 20130701
  Receipt Date: 20130701
  Transmission Date: 20140515
  Serious: Yes (Disabling, Other)
  Sender: FDA-Public Use
  Company Number: GXKR2013DE002228

PATIENT
  Sex: 0

DRUGS (2)
  1. LAMOTRIGINE [Suspect]
     Dosage: MATERNAL DOSE: 500 [MG/D ]/ 150 MG/D, INCREASED TO 2 X 250MG/D BEFORE DELIVERY
     Route: 064
     Dates: start: 20070330, end: 20071218
  2. THYRONAJOD [Concomitant]
     Route: 064
     Dates: start: 20070330, end: 20071218

REACTIONS (3)
  - Oxygen saturation decreased [Recovered/Resolved]
  - Apnoea neonatal [Recovered/Resolved]
  - Agitation [Recovered/Resolved]
